FAERS Safety Report 7751013-3 (Version None)
Quarter: 2011Q3

REPORT INFORMATION
  Report Type: 
  Country: None (occurrence: None)
  Receive Date: 20110914
  Receipt Date: 20110913
  Transmission Date: 20111222
  Serious: Yes (Hospitalization, Other)
  Sender: FDA-Public Use
  Company Number: BR-ABBOTT-11P-020-0851959-00

PATIENT
  Sex: Female
  Weight: 82 kg

DRUGS (5)
  1. ENALAPRIL MALEATE [Concomitant]
     Indication: PROPHYLAXIS
  2. ATENOLOL [Concomitant]
     Indication: HYPERTENSION
  3. ENALAPRIL MALEATE [Concomitant]
     Indication: HYPERTENSION
     Dosage: 2 IN 1 D, 40MG DAILY
     Route: 048
  4. ATENOLOL [Concomitant]
     Indication: PROPHYLAXIS
     Route: 048
  5. HUMIRA [Suspect]
     Indication: RHEUMATOID ARTHRITIS
     Route: 058
     Dates: start: 20080101, end: 20110818

REACTIONS (2)
  - FALL [None]
  - LIGAMENT SPRAIN [None]
